FAERS Safety Report 8891082 (Version 3)
Quarter: 2013Q1

REPORT INFORMATION
  Report Type: Spontaneous
  Country: US (occurrence: US)
  Receive Date: 20121107
  Receipt Date: 20130104
  Transmission Date: 20140127
  Serious: No
  Sender: FDA-Public Use
  Company Number: US-VERTEX PHARMACEUTICAL INC.-2012-024095

PATIENT
  Age: 63 None
  Sex: Female
  Weight: 66 kg

DRUGS (11)
  1. INCIVEK [Suspect]
     Indication: HEPATITIS C
     Dosage: 750 MG, TID
     Route: 048
     Dates: start: 20121017
  2. RIBAVIRIN [Suspect]
     Indication: HEPATITIS C
     Dosage: UNK, BID
     Route: 048
     Dates: start: 20121017
  3. PEGASYS [Suspect]
     Indication: HEPATITIS C
     Dosage: UNK, QW
     Route: 058
     Dates: start: 20121016
  4. ACTONEL [Concomitant]
  5. CALCIUM [Concomitant]
  6. COLACE [Concomitant]
  7. MULTIVITAMIN                       /00097801/ [Concomitant]
  8. ZOFRAN                             /00955301/ [Concomitant]
  9. PROCRIT                            /00909301/ [Concomitant]
  10. COMPAZINE                          /00013302/ [Concomitant]
  11. REMERON [Concomitant]

REACTIONS (5)
  - Influenza like illness [Unknown]
  - Decreased appetite [Not Recovered/Not Resolved]
  - Vomiting [Unknown]
  - Anorectal discomfort [Unknown]
  - Nausea [Unknown]
